FAERS Safety Report 5770305-0 (Version None)
Quarter: 2008Q2

REPORT INFORMATION
  Report Type: 
  Country: None (occurrence: None)
  Receive Date: 20080613
  Receipt Date: 20080424
  Transmission Date: 20081010
  Serious: No
  Sender: FDA-Public Use
  Company Number: US-ABBOTT-08P-163-0449040-00

PATIENT
  Sex: Female
  Weight: 104.42 kg

DRUGS (9)
  1. HUMIRA [Suspect]
     Indication: CROHN'S DISEASE
     Route: 058
     Dates: start: 20070701
  2. HUMIRA [Suspect]
     Indication: ARTHRITIS
  3. MESALAMINE [Concomitant]
     Indication: CROHN'S DISEASE
     Route: 048
     Dates: start: 20051101
  4. LISINOPRIL [Concomitant]
     Indication: URINE ANALYSIS ABNORMAL
     Route: 048
  5. METHOTREXATE [Concomitant]
     Indication: ARTHRITIS
     Dosage: 2.5 MG X 6 TABLETS
     Route: 048
     Dates: start: 20050101
  6. FOLIC ACID [Concomitant]
     Indication: MEDICAL DIET
     Route: 048
     Dates: start: 20050101
  7. NAPROXEN [Concomitant]
     Indication: ARTHRITIS
  8. INEGY [Concomitant]
     Indication: BLOOD CHOLESTEROL INCREASED
     Route: 048
     Dates: start: 20060101
  9. INEGY [Concomitant]
     Route: 048
     Dates: start: 20060101

REACTIONS (2)
  - NASOPHARYNGITIS [None]
  - SINUSITIS [None]
